FAERS Safety Report 4571453-3 (Version None)
Quarter: 2005Q1

REPORT INFORMATION
  Report Type: 
  Country: None (occurrence: None)
  Receive Date: 20050207
  Receipt Date: 20050125
  Transmission Date: 20050727
  Serious: Yes (Hospitalization)
  Sender: FDA-Public Use
  Company Number: US-JNJFOC-20040900431

PATIENT
  Sex: Female

DRUGS (11)
  1. REMICADE [Suspect]
     Route: 042
  2. REMICADE [Suspect]
     Route: 042
  3. REMICADE [Suspect]
     Route: 042
  4. REMICADE [Suspect]
     Indication: RHEUMATOID ARTHRITIS
     Route: 042
  5. METHOTREXATE [Concomitant]
     Dosage: 7 TABLETS WEEKLY
  6. FOLIC ACID [Concomitant]
     Dosage: 7 TABLETS WEEKLY
  7. PLAQUENIL [Concomitant]
  8. FLEXERIL [Concomitant]
     Dosage: AT BEDTIME
  9. AMITRIPTYLINE [Concomitant]
  10. LORTAB [Concomitant]
  11. LORTAB [Concomitant]
     Dosage: 750 MG, 4 TO 5 TABLETS DAILY

REACTIONS (4)
  - ASTHMA [None]
  - BRONCHITIS [None]
  - PNEUMONIA VIRAL [None]
  - TREATMENT NONCOMPLIANCE [None]
